FAERS Safety Report 8460006-2 (Version None)
Quarter: 2012Q2

REPORT INFORMATION
  Report Type: 
  Country: None (occurrence: None)
  Receive Date: 20120622
  Receipt Date: 20120619
  Transmission Date: 20120825
  Serious: Yes (Other)
  Sender: FDA-Public Use
  Company Number: PHHY2012CN052974

PATIENT
  Age: 64 Year
  Sex: Male

DRUGS (4)
  1. PHENFORMIN HCL SRC [Suspect]
  2. CHINESE HERBAL MEDICINES [Suspect]
  3. GLYBURIDE [Suspect]
  4. METFORMIN HCL [Suspect]

REACTIONS (2)
  - HYPOGLYCAEMIA [None]
  - LACTIC ACIDOSIS [None]
